FAERS Safety Report 7636401-8 (Version None)
Quarter: 2011Q3

REPORT INFORMATION
  Report Type: 
  Country: None (occurrence: None)
  Receive Date: 20110726
  Receipt Date: 20110718
  Transmission Date: 20111222
  Serious: Yes (Hospitalization)
  Sender: FDA-Public Use
  Company Number: US-ALEXION-A201101075

PATIENT
  Sex: Female

DRUGS (7)
  1. PRILOSEC [Concomitant]
     Dosage: UNK
  2. SOLIRIS [Suspect]
     Dosage: 900 MG, Q2W
     Route: 042
     Dates: start: 20090511
  3. COMPAZINE [Concomitant]
     Indication: NAUSEA
     Dosage: UNK, PRN
  4. SOLIRIS [Suspect]
     Indication: PAROXYSMAL NOCTURNAL HAEMOGLOBINURIA
     Dosage: 600 MG, QW
     Route: 042
     Dates: start: 20090413, end: 20090101
  5. TYLENOL-500 [Concomitant]
     Dosage: UNK
  6. MARIJUANA [Concomitant]
     Dosage: UNK
  7. TRAMADOL HCL [Concomitant]
     Indication: PAIN
     Dosage: UNK

REACTIONS (5)
  - GASTROENTERITIS [None]
  - CATHETER SITE ERYTHEMA [None]
  - CATHETER SITE PAIN [None]
  - BACTERIAL SEPSIS [None]
  - SUBCLAVIAN VEIN THROMBOSIS [None]
